FAERS Safety Report 6079918-2 (Version None)
Quarter: 2009Q1

REPORT INFORMATION
  Report Type: 
  Country: None (occurrence: None)
  Receive Date: 20090217
  Receipt Date: 20090202
  Transmission Date: 20090719
  Serious: Yes (Hospitalization)
  Sender: FDA-Public Use
  Company Number: FR-AVENTIS-200910400FR

PATIENT
  Age: 67 Year
  Sex: Female

DRUGS (15)
  1. LASIX [Suspect]
     Route: 048
     Dates: start: 20081016, end: 20081017
  2. TRIATEC COMP [Suspect]
     Dosage: DOSE: 5/12.5
     Route: 048
     Dates: end: 20081019
  3. ALDACTONE [Suspect]
     Route: 048
     Dates: start: 20081016, end: 20081020
  4. DIFFU K [Suspect]
     Route: 048
     Dates: start: 20081016, end: 20081020
  5. NOROXIN [Suspect]
     Route: 048
     Dates: start: 20081015, end: 20081020
  6. COLCHICINE [Suspect]
     Route: 048
     Dates: start: 20081016, end: 20081020
  7. BISOPROLOL [Suspect]
     Route: 048
     Dates: end: 20081016
  8. DILTIAZEM HCL [Concomitant]
     Indication: PROPHYLAXIS
     Route: 048
     Dates: start: 20081017
  9. PREVISCAN                          /00789001/ [Concomitant]
     Indication: DRUG USE FOR UNKNOWN INDICATION
     Route: 048
  10. OMEPRAZOLE [Concomitant]
     Indication: DRUG USE FOR UNKNOWN INDICATION
  11. TEMESTA                            /00273201/ [Concomitant]
     Indication: DRUG USE FOR UNKNOWN INDICATION
  12. NOCTAMIDE [Concomitant]
     Indication: DRUG USE FOR UNKNOWN INDICATION
  13. BONIVA [Concomitant]
     Indication: DRUG USE FOR UNKNOWN INDICATION
  14. SPIRIVA [Concomitant]
     Indication: DRUG USE FOR UNKNOWN INDICATION
  15. SYMBICORT [Concomitant]
     Indication: DRUG USE FOR UNKNOWN INDICATION

REACTIONS (3)
  - DRUG INTERACTION [None]
  - HYPERKALAEMIA [None]
  - RENAL FAILURE ACUTE [None]
